FAERS Safety Report 9205935 (Version 1)
Quarter: 2013Q2

REPORT INFORMATION
  Report Type: Spontaneous
  Country: US (occurrence: US)
  Receive Date: 20130403
  Receipt Date: 20130403
  Transmission Date: 20140414
  Serious: Yes (Other)
  Sender: FDA-Public Use
  Company Number: US-JNJFOC-20130316460

PATIENT
  Sex: Male
  Weight: 149.69 kg

DRUGS (2)
  1. LEVAQUIN [Suspect]
     Indication: SKIN BACTERIAL INFECTION
     Dosage: FOR 7 DAYS
     Route: 048
     Dates: start: 201009, end: 201009
  2. ASPIRIN [Concomitant]
     Indication: PRODUCT USED FOR UNKNOWN INDICATION
     Route: 048
     Dates: start: 2011

REACTIONS (4)
  - Blindness [Recovering/Resolving]
  - Optic neuritis [Unknown]
  - Optic nerve disorder [Unknown]
  - Skin infection [Recovered/Resolved]
